FAERS Safety Report 12331164 (Version 1)
Quarter: 2016Q2

REPORT INFORMATION
  Report Type: Spontaneous
  Country: ZA (occurrence: ZA)
  Receive Date: 20160504
  Receipt Date: 20160504
  Transmission Date: 20160815
  Serious: Yes (Death, Other)
  Sender: FDA-Public Use
  Company Number: ZA-CELGENEUS-ZAF-2016037432

PATIENT
  Sex: Male
  Weight: 85 kg

DRUGS (2)
  1. POMALIDOMIDE [Suspect]
     Active Substance: POMALIDOMIDE
     Indication: PLASMA CELL MYELOMA
     Route: 048
     Dates: start: 20160209, end: 20160220
  2. POMALIDOMIDE [Suspect]
     Active Substance: POMALIDOMIDE
     Route: 048
     Dates: end: 20160314

REACTIONS (5)
  - Pulmonary embolism [Fatal]
  - Sepsis [Fatal]
  - Peripheral swelling [Unknown]
  - Plasma cell myeloma [Fatal]
  - Pancytopenia [Unknown]
